FAERS Safety Report 6191766-1 (Version None)
Quarter: 2009Q2

REPORT INFORMATION
  Report Type: 
  Country: None (occurrence: None)
  Receive Date: 20090515
  Receipt Date: 20090505
  Transmission Date: 20091009
  Serious: Yes (Other)
  Sender: FDA-Public Use
  Company Number: US-PFIZER INC-2009212416

PATIENT
  Sex: Female
  Weight: 63.492 kg

DRUGS (14)
  1. CHANTIX [Suspect]
     Indication: SMOKING CESSATION THERAPY
     Dosage: 0.05 MG, 1X/DAY
     Dates: start: 20090401, end: 20090401
  2. NICOTROL [Suspect]
     Dates: start: 20090504
  3. LEXAPRO [Concomitant]
     Dosage: UNK
  4. ZOLOFT [Concomitant]
     Dosage: UNK
  5. LYRICA [Concomitant]
     Dosage: UNK
  6. ELAVIL [Concomitant]
     Dosage: UNK
  7. RESTORIL [Concomitant]
     Dosage: UNK
  8. NEXIUM [Concomitant]
     Dosage: UNK
  9. VITAMINS [Concomitant]
     Dosage: UNK
  10. ALLEGRA D 24 HOUR [Concomitant]
     Dosage: UNK
  11. KLONOPIN [Concomitant]
     Dosage: UNK
  12. IRON [Concomitant]
     Dosage: UNK
  13. CYTOMEL [Concomitant]
     Dosage: UNK
  14. SYNTHROID [Concomitant]
     Dosage: UNK

REACTIONS (6)
  - BLOOD GLUCOSE INCREASED [None]
  - COUGH [None]
  - DEPRESSION [None]
  - DIZZINESS [None]
  - EUPHORIC MOOD [None]
  - SUICIDAL IDEATION [None]
